FAERS Safety Report 7633829 (Version 5)
Quarter: 2013Q2

REPORT INFORMATION
  Report Type: Report from Study
  Country: DE (occurrence: DE)
  Receive Date: 20101019
  Receipt Date: 20130425
  Transmission Date: 20140414
  Serious: Yes (Hospitalization)
  Sender: FDA-Public Use
  Company Number: DE-BAYER-201042319GPV

PATIENT
  Age: 71 Year
  Sex: Male
  Weight: 76 kg

DRUGS (1)
  1. NEXAVAR [Suspect]
     Indication: HEPATOCELLULAR CARCINOMA
     Dosage: 400 MG, BID
     Route: 048
     Dates: start: 20100415, end: 20101103

REACTIONS (6)
  - Escherichia urinary tract infection [Recovering/Resolving]
  - Pyrexia [Recovering/Resolving]
  - Diarrhoea [Recovering/Resolving]
  - Asthenia [Recovering/Resolving]
  - Fall [Recovering/Resolving]
  - Pneumonia [Unknown]
